FAERS Safety Report 10694945 (Version 1)
Quarter: 2015Q1

REPORT INFORMATION
  Report Type: Spontaneous
  Country: US (occurrence: None)
  Receive Date: 20150105
  Receipt Date: 20150105
  Transmission Date: 20150721
  Serious: Yes (Hospitalization, Disabling)
  Sender: FDA-Public Use
  Company Number: None

PATIENT
  Age: 45 Year
  Sex: Female
  Weight: 79.38 kg

DRUGS (16)
  1. VELIVET [Concomitant]
     Active Substance: DESOGESTREL\ETHINYL ESTRADIOL
  2. FOLIC ACID. [Concomitant]
     Active Substance: FOLIC ACID
  3. DEPO-MEDROL [Suspect]
     Active Substance: METHYLPREDNISOLONE ACETATE
     Indication: BACK PAIN
     Dosage: SINGLE INJECTION (ESI)
     Dates: start: 20101217, end: 20101217
  4. XYZAL [Concomitant]
     Active Substance: LEVOCETIRIZINE DIHYDROCHLORIDE
  5. GAS X STRIPS [Concomitant]
  6. PERCOCET [Concomitant]
     Active Substance: ACETAMINOPHEN\OXYCODONE HYDROCHLORIDE
  7. ZANTAC [Concomitant]
     Active Substance: RANITIDINE HYDROCHLORIDE
  8. COLACE [Concomitant]
     Active Substance: DOCUSATE SODIUM
  9. VALIUM [Concomitant]
     Active Substance: DIAZEPAM
  10. MUCINEX D [Concomitant]
     Active Substance: GUAIFENESIN\PSEUDOEPHEDRINE HYDROCHLORIDE
  11. DEPO-MEDROL [Suspect]
     Active Substance: METHYLPREDNISOLONE ACETATE
     Indication: PAIN IN EXTREMITY
     Dosage: SINGLE INJECTION (ESI)
     Dates: start: 20101217, end: 20101217
  12. SALINE [Suspect]
     Active Substance: SODIUM CHLORIDE
  13. NEXIUM [Concomitant]
     Active Substance: ESOMEPRAZOLE MAGNESIUM
  14. PRAVASTATIN [Concomitant]
     Active Substance: PRAVASTATIN\PRAVASTATIN SODIUM
  15. OSMOPREP [Concomitant]
     Active Substance: SODIUM PHOSPHATE, DIBASIC, ANHYDROUS\SODIUM PHOSPHATE, MONOBASIC, MONOHYDRATE
  16. IBUPROFEN. [Concomitant]
     Active Substance: IBUPROFEN

REACTIONS (8)
  - Abasia [None]
  - Back pain [None]
  - Arachnoiditis [None]
  - Iatrogenic injury [None]
  - Functional gastrointestinal disorder [None]
  - Bladder dysfunction [None]
  - Dysuria [None]
  - Wheelchair user [None]

NARRATIVE: CASE EVENT DATE: 20101217
